FAERS Safety Report 4346329-7 (Version None)
Quarter: 2004Q2

REPORT INFORMATION
  Report Type: 
  Country: None (occurrence: None)
  Receive Date: 20040423
  Receipt Date: 20040423
  Transmission Date: 20050107
  Serious: Yes (Other)
  Sender: FDA-Public Use
  Company Number: None

PATIENT
  Age: 92 Year
  Sex: Female
  Weight: 38.5557 kg

DRUGS (1)
  1. ZOSYN [Suspect]
     Indication: SEPSIS
     Dosage: 3.375 Q 8 HR IV
     Route: 042
     Dates: start: 20040416, end: 20040421

REACTIONS (1)
  - RASH [None]
